FAERS Safety Report 15014583 (Version 1)
Quarter: 2018Q2

REPORT INFORMATION
  Report Type: Spontaneous
  Country: NL (occurrence: NL)
  Receive Date: 20180615
  Receipt Date: 20180615
  Transmission Date: 20180711
  Serious: Yes (Hospitalization)
  Sender: FDA-Public Use
  Company Number: NL-TEVA-2018-NL-907025

PATIENT
  Age: 55 Year
  Sex: Female
  Weight: 70 kg

DRUGS (2)
  1. ZOLPIDEMTARTRAAT 10 MG [Concomitant]
  2. VENLAFAXINE [Suspect]
     Active Substance: VENLAFAXINE HYDROCHLORIDE
     Indication: DEPRESSION
     Dosage: 75 MILLIGRAM DAILY;
     Dates: start: 20180416, end: 20180417

REACTIONS (6)
  - Tongue discolouration [Recovering/Resolving]
  - Skin odour abnormal [Recovered/Resolved]
  - Abdominal pain [Recovering/Resolving]
  - Presyncope [Recovered/Resolved]
  - Oral mucosal blistering [Recovering/Resolving]
  - Paraesthesia [Recovered/Resolved]

NARRATIVE: CASE EVENT DATE: 20180416
